FAERS Safety Report 6513040-3 (Version None)
Quarter: 2009Q4

REPORT INFORMATION
  Report Type: 
  Country: None (occurrence: None)
  Receive Date: 20091222
  Receipt Date: 20091222
  Transmission Date: 20100525
  Serious: No
  Sender: FDA-Public Use
  Company Number: None

PATIENT
  Age: 52 Year
  Sex: Female
  Weight: 55.7924 kg

DRUGS (1)
  1. NITROFURANTOIN [Suspect]
     Indication: URINARY TRACT INFECTION
     Dosage: 100MG BID PO
     Route: 048
     Dates: start: 20091218, end: 20091219

REACTIONS (3)
  - CONFUSIONAL STATE [None]
  - NEUROPATHY PERIPHERAL [None]
  - STUPOR [None]
